FAERS Safety Report 24961236 (Version 1)
Quarter: 2025Q1

REPORT INFORMATION
  Report Type: Spontaneous
  Country: US (occurrence: US)
  Receive Date: 20250212
  Receipt Date: 20250212
  Transmission Date: 20250408
  Serious: No
  Sender: AMGEN
  Company Number: US-AMGEN-USASP2025027432

PATIENT
  Sex: Female

DRUGS (1)
  1. EVENITY [Suspect]
     Active Substance: ROMOSOZUMAB-AQQG
     Indication: Product used for unknown indication
     Route: 065
     Dates: end: 20241123

REACTIONS (3)
  - Flatulence [Unknown]
  - Diarrhoea [Recovering/Resolving]
  - Faeces pale [Recovering/Resolving]

NARRATIVE: CASE EVENT DATE: 20240101
